FAERS Safety Report 7226318-5 (Version None)
Quarter: 2011Q1

REPORT INFORMATION
  Report Type: 
  Country: None (occurrence: None)
  Receive Date: 20110114
  Receipt Date: 20110107
  Transmission Date: 20110831
  Serious: Yes (Death, Hospitalization)
  Sender: FDA-Public Use
  Company Number: PHHY2010CA89208

PATIENT
  Sex: Male

DRUGS (21)
  1. CLOZARIL [Suspect]
     Indication: SCHIZOPHRENIA
     Dosage: 6.25 MG
     Dates: start: 20101208
  2. METOPROLOL [Concomitant]
     Dosage: 25 MG, BID
  3. POTASSIUM CHLORIDE [Concomitant]
     Dosage: 16 MEQ, BID
  4. FUROSEMIDE [Concomitant]
     Dosage: 100 MG, BID2SDO
  5. DOVOBET [Concomitant]
  6. CLOZARIL [Suspect]
     Dosage: 6.25 MG, UNK
     Route: 048
     Dates: start: 20101221, end: 20101222
  7. CALCITRIOL [Concomitant]
     Dosage: 0.25 MG, UNK
  8. GLICLAZIDE [Concomitant]
     Dosage: 30 MG, UNK
  9. CLOZARIL [Suspect]
     Dosage: 12.5 MG, UNK
  10. ALLOPURINOL [Concomitant]
     Dosage: 300 MG, UNK
  11. OSCAL [Concomitant]
     Dosage: 1000 MG, BID
  12. KETOCONAZOLE [Concomitant]
     Dosage: 2 %, UNK
     Route: 061
  13. QUETIAPINE [Concomitant]
     Dosage: 400 MG, QHS
  14. BENADRYL ^ACHE^ [Concomitant]
  15. LEVOTHYROXINE [Concomitant]
     Dosage: 0.225 MG, UNK
  16. FLOMAX [Concomitant]
     Dosage: 0.4 MG, BID
  17. DOCUSATE [Concomitant]
     Dosage: 200 MG, BID
  18. FERROUS GLUCONATE [Concomitant]
     Dosage: 300 MG, BID
  19. CLOZARIL [Suspect]
     Indication: PARKINSON'S DISEASE
     Dosage: 12.5 MG
  20. COUMADIN [Concomitant]
     Dosage: 7 MG, UNK
  21. COLCHICINE [Concomitant]
     Dosage: 0.3 MG, UNK

REACTIONS (3)
  - PNEUMONIA [None]
  - PYREXIA [None]
  - DEATH [None]
